FAERS Safety Report 25872102 (Version 1)
Quarter: 2025Q4

REPORT INFORMATION
  Report Type: Report from Study
  Country: US (occurrence: US)
  Receive Date: 20251002
  Receipt Date: 20251002
  Transmission Date: 20260118
  Serious: Yes (Other)
  Sender: ABBVIE
  Company Number: US-ABBVIE-6482981

PATIENT
  Age: 47 Year

DRUGS (1)
  1. QULIPTA [Suspect]
     Active Substance: ATOGEPANT
     Indication: Hemiplegic migraine
     Route: 048
     Dates: start: 202507

REACTIONS (4)
  - Blindness unilateral [Recovering/Resolving]
  - Migraine [Unknown]
  - Off label use [Unknown]
  - Eye pain [Unknown]

NARRATIVE: CASE EVENT DATE: 20250101
